FAERS Safety Report 12372923 (Version 3)
Quarter: 2016Q4

REPORT INFORMATION
  Report Type: Spontaneous
  Country: US (occurrence: US)
  Receive Date: 20160516
  Receipt Date: 20161107
  Transmission Date: 20170207
  Serious: Yes (Hospitalization, Other)
  Sender: FDA-Public Use
  Company Number: US-TAKEDA-2016TUS008190

PATIENT
  Sex: Male

DRUGS (2)
  1. TOPROL XL [Concomitant]
     Active Substance: METOPROLOL SUCCINATE
     Indication: HYPERTENSION
  2. ACTOS [Suspect]
     Active Substance: PIOGLITAZONE HYDROCHLORIDE
     Indication: BLOOD GLUCOSE ABNORMAL
     Dosage: 15 MG, UNK
     Route: 048
     Dates: start: 20050419

REACTIONS (5)
  - Aneurysm [Unknown]
  - Visual impairment [Unknown]
  - Cystitis [Unknown]
  - Cardiac failure [Unknown]
  - Eye operation [Unknown]
